FAERS Safety Report 5958800-2 (Version None)
Quarter: 2008Q4

REPORT INFORMATION
  Report Type: 
  Country: None (occurrence: None)
  Receive Date: 20081117
  Receipt Date: 20081030
  Transmission Date: 20090506
  Serious: Yes (Hospitalization)
  Sender: FDA-Public Use
  Company Number: 8039455

PATIENT
  Age: 33 Year
  Sex: Male
  Weight: 75 kg

DRUGS (5)
  1. CIMZIA [Suspect]
     Indication: CROHN'S DISEASE
     Dosage: 4000 MG 1/2W SC
     Route: 058
     Dates: start: 20081016
  2. PREDNISONE TAB [Concomitant]
  3. IMURAN [Concomitant]
  4. PROBIOTICA [Concomitant]
  5. IMODIUM [Concomitant]

REACTIONS (5)
  - DEHYDRATION [None]
  - HEADACHE [None]
  - PYREXIA [None]
  - RASH [None]
  - RASH PUSTULAR [None]
